FAERS Safety Report 13729322 (Version 2)
Quarter: 2017Q3

REPORT INFORMATION
  Report Type: Spontaneous
  Country: ES (occurrence: ES)
  Receive Date: 20170707
  Receipt Date: 20170814
  Transmission Date: 20171127
  Serious: Yes (Other)
  Sender: FDA-Public Use
  Company Number: ES-CONCORDIA PHARMACEUTICALS INC.-E2B_00008221

PATIENT
  Age: 74 Year
  Sex: Female

DRUGS (19)
  1. RAMIPRIL. [Interacting]
     Active Substance: RAMIPRIL
  2. CLOBETASOL [Interacting]
     Active Substance: CLOBETASOL
     Route: 061
  3. METHOTREXATE. [Interacting]
     Active Substance: METHOTREXATE
  4. FOLIC ACID. [Concomitant]
     Active Substance: FOLIC ACID
  5. INSULIN [Concomitant]
     Active Substance: INSULIN NOS
  6. OMEPRAZOLE. [Interacting]
     Active Substance: OMEPRAZOLE
  7. ALPRAZOLAM. [Interacting]
     Active Substance: ALPRAZOLAM
     Indication: DISORIENTATION
  8. HYDROCORTISONE. [Interacting]
     Active Substance: HYDROCORTISONE
     Indication: ERYTHRODERMIC PSORIASIS
     Route: 061
  9. ACENOCOUMAROL [Interacting]
     Active Substance: ACENOCOUMAROL
  10. BISOPROLOL [Interacting]
     Active Substance: BISOPROLOL
  11. DILTIAZEM. [Interacting]
     Active Substance: DILTIAZEM
  12. DIGOXIN. [Suspect]
     Active Substance: DIGOXIN
     Dosage: 5 DAY  PER WEEK
  13. FUROSEMIDE. [Interacting]
     Active Substance: FUROSEMIDE
  14. CLORAZEPATE [Interacting]
     Active Substance: CLORAZEPATE DIPOTASSIUM
  15. HYDROCHLOROTHIAZIDE. [Interacting]
     Active Substance: HYDROCHLOROTHIAZIDE
  16. PREDNISONE. [Interacting]
     Active Substance: PREDNISONE
     Indication: ERYTHRODERMIC PSORIASIS
     Route: 048
  17. ALPRAZOLAM. [Interacting]
     Active Substance: ALPRAZOLAM
     Indication: EUPHORIC MOOD
  18. METHYLPREDNISOLONE ACEPONATE [Interacting]
     Active Substance: METHYLPREDNISOLONE ACEPONATE
     Indication: ERYTHEMA
     Route: 061
  19. ENOXAPARIN [Interacting]
     Active Substance: ENOXAPARIN

REACTIONS (10)
  - Disorientation [Unknown]
  - Somnolence [Unknown]
  - Drug interaction [Unknown]
  - Stupor [Unknown]
  - Erythrodermic psoriasis [Recovering/Resolving]
  - Erythema [Recovering/Resolving]
  - Condition aggravated [Recovering/Resolving]
  - Transaminases increased [Recovering/Resolving]
  - Euphoric mood [Unknown]
  - Toxicity to various agents [Recovering/Resolving]
